FAERS Safety Report 5401477-5 (Version None)
Quarter: 2007Q3

REPORT INFORMATION
  Report Type: 
  Country: None (occurrence: None)
  Receive Date: 20070731
  Receipt Date: 20060711
  Transmission Date: 20080115
  Serious: No
  Sender: FDA-Public Use
  Company Number: A0610572A

PATIENT
  Age: 78 Year
  Sex: Female

DRUGS (3)
  1. DYAZIDE [Suspect]
     Indication: DRUG USE FOR UNKNOWN INDICATION
  2. ATENOLOL [Concomitant]
  3. SYNTHROID [Concomitant]

REACTIONS (3)
  - BLOOD PRESSURE FLUCTUATION [None]
  - BLOOD PRESSURE INADEQUATELY CONTROLLED [None]
  - HYPERTENSION [None]
